FAERS Safety Report 8049531-6 (Version None)
Quarter: 2012Q1

REPORT INFORMATION
  Report Type: 
  Country: None (occurrence: None)
  Receive Date: 20120111
  Receipt Date: 20110726
  Transmission Date: 20120608
  Serious: Yes (Other)
  Sender: FDA-Public Use
  Company Number: CPI 2543

PATIENT
  Age: 42 Year
  Sex: Female

DRUGS (1)
  1. CALDOLOR [Suspect]
     Indication: PREOPERATIVE CARE
     Dosage: 800MG ONE-TIME IV
     Route: 042
     Dates: start: 20110726

REACTIONS (2)
  - VEIN PAIN [None]
  - INFUSION SITE PAIN [None]
